FAERS Safety Report 22397716 (Version 5)
Quarter: 2024Q2

REPORT INFORMATION
  Report Type: Spontaneous
  Country: CA (occurrence: CA)
  Receive Date: 20230602
  Receipt Date: 20240617
  Transmission Date: 20240716
  Serious: Yes (Congenital Anomaly, Other)
  Sender: FDA-Public Use
  Company Number: US-SA-SAC20230531001170

PATIENT

DRUGS (9)
  1. DUPIXENT [Suspect]
     Active Substance: DUPILUMAB
     Indication: Maternal exposure during pregnancy
     Dosage: UNK
     Route: 064
     Dates: start: 2018
  2. PREDNISONE [Suspect]
     Active Substance: PREDNISONE
     Indication: Maternal exposure during pregnancy
     Dosage: UNK
     Route: 064
  3. PREDNISONE [Suspect]
     Active Substance: PREDNISONE
     Dosage: {20 MG/DAY
     Route: 064
  4. MIRTAZAPINE [Suspect]
     Active Substance: MIRTAZAPINE
     Indication: Maternal exposure during pregnancy
     Dosage: UNK
     Route: 064
  5. FLUTICASONE FUROATE [Suspect]
     Active Substance: FLUTICASONE FUROATE
     Indication: Maternal exposure during pregnancy
     Dosage: UNK, INHALER, HIGH DOSE
     Route: 064
  6. OMALIZUMAB [Suspect]
     Active Substance: OMALIZUMAB
     Indication: Maternal exposure during pregnancy
     Dosage: UNK
     Route: 064
     Dates: start: 2009
  7. VILANTEROL [Suspect]
     Active Substance: VILANTEROL
     Indication: Maternal exposure during pregnancy
     Dosage: UNK, INHALER
     Route: 064
  8. TIOTROPIUM [Suspect]
     Active Substance: TIOTROPIUM
     Indication: Maternal exposure during pregnancy
     Dosage: UNK, INHALER
     Route: 064
  9. OXYGEN [Suspect]
     Active Substance: OXYGEN
     Indication: Maternal exposure during pregnancy
     Dosage: 3 L
     Route: 064

REACTIONS (6)
  - Pituitary stalk interruption syndrome [Unknown]
  - Hypopituitarism [Unknown]
  - Secondary hypogonadism [Unknown]
  - Cleft palate [Unknown]
  - Congenital pharyngeal anomaly [Unknown]
  - Foetal exposure during pregnancy [Unknown]
